FAERS Safety Report 16710394 (Version 1)
Quarter: 2019Q4

REPORT INFORMATION
  Report Type: Spontaneous
  Country: US (occurrence: US)
  Receive Date: 20190815
  Receipt Date: 20190815
  Transmission Date: 20200122
  Serious: Yes (Hospitalization, Disabling)
  Sender: FDA-Public Use
  Company Number: None

PATIENT
  Age: 73 Year
  Sex: Female
  Weight: 66.8 kg

DRUGS (1)
  1. TOFACITANIB XR [Suspect]
     Active Substance: TOFACITINIB
     Indication: RHEUMATOID ARTHRITIS
     Route: 048
     Dates: start: 20181128, end: 20190811

REACTIONS (3)
  - Pneumatosis [None]
  - Dry gangrene [None]
  - Intestinal perforation [None]

NARRATIVE: CASE EVENT DATE: 20190811
